FAERS Safety Report 16491943 (Version 1)
Quarter: 2019Q3

REPORT INFORMATION
  Report Type: Spontaneous
  Country: US (occurrence: US)
  Receive Date: 20190627
  Receipt Date: 20190627
  Transmission Date: 20191004
  Serious: No
  Sender: FDA-Public Use
  Company Number: None

PATIENT
  Age: 61 Year
  Sex: Male
  Weight: 63.96 kg

DRUGS (2)
  1. KETAMINE [Suspect]
     Active Substance: KETAMINE
  2. BD CAREFUSION [Suspect]
     Active Substance: DEVICE

REACTIONS (4)
  - Hypotension [None]
  - Device malfunction [None]
  - Incorrect drug administration rate [None]
  - Device breakage [None]

NARRATIVE: CASE EVENT DATE: 20190620
